FAERS Safety Report 12548941 (Version 1)
Quarter: 2016Q3

REPORT INFORMATION
  Report Type: Spontaneous
  Country: US (occurrence: US)
  Receive Date: 20160712
  Receipt Date: 20160712
  Transmission Date: 20161109
  Serious: No
  Sender: FDA-Public Use
  Company Number: US-BEH-2016070555

PATIENT
  Sex: Female
  Weight: 133.79 kg

DRUGS (47)
  1. DIPHENHYDRAMINE. [Concomitant]
     Active Substance: DIPHENHYDRAMINE
  2. VITAMIN B [Concomitant]
     Active Substance: VITAMIN B
  3. MYCOPHENOLATE [Concomitant]
     Active Substance: MYCOPHENOLIC ACID
  4. PREVACID [Concomitant]
     Active Substance: LANSOPRAZOLE
  5. ZEMAIRA [Suspect]
     Active Substance: .ALPHA.1-PROTEINASE INHIBITOR HUMAN
     Indication: ALPHA-1 ANTI-TRYPSIN DEFICIENCY
     Dosage: 60 MG/KG, QW
     Route: 042
     Dates: start: 20121112
  6. ACYCLOVIR                          /00587301/ [Concomitant]
     Active Substance: ACYCLOVIR
  7. EPIPEN [Concomitant]
     Active Substance: EPINEPHRINE
  8. TIZANIDINE. [Concomitant]
     Active Substance: TIZANIDINE
  9. XANAX [Concomitant]
     Active Substance: ALPRAZOLAM
  10. AMBIEN [Concomitant]
     Active Substance: ZOLPIDEM TARTRATE
  11. SENOKOT [Concomitant]
     Active Substance: SENNOSIDES
  12. ADVAIR HFA [Concomitant]
     Active Substance: FLUTICASONE PROPIONATE\SALMETEROL XINAFOATE
  13. BACTRIM [Concomitant]
     Active Substance: SULFAMETHOXAZOLE\TRIMETHOPRIM
  14. HEPARIN [Concomitant]
     Active Substance: HEPARIN SODIUM
  15. LIDOCAINE. [Concomitant]
     Active Substance: LIDOCAINE
  16. LEVEMIR [Concomitant]
     Active Substance: INSULIN DETEMIR
  17. XYZAL [Concomitant]
     Active Substance: LEVOCETIRIZINE DIHYDROCHLORIDE
  18. STOOL SOFTENER [Concomitant]
     Active Substance: DOCUSATE CALCIUM
  19. MULTIVITAMIN                       /00097801/ [Concomitant]
     Active Substance: VITAMINS
  20. CALCI-CHEW [Concomitant]
  21. METOPROLOL. [Concomitant]
     Active Substance: METOPROLOL
  22. CALCIUM [Concomitant]
     Active Substance: CALCIUM
  23. VITAMIN C [Concomitant]
     Active Substance: ASCORBIC ACID
  24. PREDNISONE. [Concomitant]
     Active Substance: PREDNISONE
  25. ZANTAC [Concomitant]
     Active Substance: RANITIDINE HYDROCHLORIDE
  26. PROGRAF [Concomitant]
     Active Substance: TACROLIMUS\TACROLIMUS ANHYDROUS
  27. MELATONIN [Concomitant]
     Active Substance: MELATONIN
  28. MAGNESIUM [Concomitant]
     Active Substance: MAGNESIUM
  29. LYRICA [Concomitant]
     Active Substance: PREGABALIN
  30. NOVOLOG [Concomitant]
     Active Substance: INSULIN ASPART
  31. NORCO [Concomitant]
     Active Substance: ACETAMINOPHEN\HYDROCODONE BITARTRATE
  32. CYMBALTA [Concomitant]
     Active Substance: DULOXETINE HYDROCHLORIDE
  33. CELLCEPT [Concomitant]
     Active Substance: MYCOPHENOLATE MOFETIL\MYCOPHENOLATE MOFETIL HYDROCHLORIDE
  34. NOXAFIL [Concomitant]
     Active Substance: POSACONAZOLE
  35. ALLERGY AND CONGESTION [Concomitant]
  36. VICTOZA [Concomitant]
     Active Substance: LIRAGLUTIDE
  37. TRAMADOL. [Concomitant]
     Active Substance: TRAMADOL
  38. POTASSIUM [Concomitant]
     Active Substance: POTASSIUM
  39. SPIRIVA [Concomitant]
     Active Substance: TIOTROPIUM BROMIDE MONOHYDRATE
  40. VITAMIN E                          /00110501/ [Concomitant]
     Active Substance: TOCOPHEROL
  41. LAXATIVE [Concomitant]
     Active Substance: UNSPECIFIED INGREDIENT
  42. SODIUM CHLORIDE. [Concomitant]
     Active Substance: SODIUM CHLORIDE
  43. FUROSEMIDE. [Concomitant]
     Active Substance: FUROSEMIDE
  44. LEVOCETIRIZINE [Concomitant]
     Active Substance: LEVOCETIRIZINE
  45. VITAMIN D                          /00107901/ [Concomitant]
     Active Substance: ERGOCALCIFEROL
  46. ADVIL (MEFENAMIC ACID) [Concomitant]
     Active Substance: MEFENAMIC ACID
  47. GLUCOSAMINE [Concomitant]
     Active Substance: GLUCOSAMINE

REACTIONS (1)
  - Bronchitis [Unknown]
